FAERS Safety Report 9159123 (Version 1)
Quarter: 2013Q1

REPORT INFORMATION
  Report Type: Spontaneous
  Country: US (occurrence: None)
  Receive Date: 20130311
  Receipt Date: 20130311
  Transmission Date: 20140127
  Serious: Yes (Death)
  Sender: FDA-Public Use
  Company Number: B0873141A

PATIENT
  Age: 9 Year
  Sex: 0

DRUGS (3)
  1. MELPHALAN [Suspect]
  2. FLUDARABINE PHOSPHATE [Suspect]
  3. ALEMTUZUMAB [Suspect]

REACTIONS (7)
  - Bacteraemia [None]
  - Staphylococcal sepsis [None]
  - Viraemia [None]
  - Adenovirus infection [None]
  - Pneumonia [None]
  - Respiratory failure [None]
  - Chronic graft versus host disease [None]
